FAERS Safety Report 7240262-9 (Version None)
Quarter: 2011Q1

REPORT INFORMATION
  Report Type: 
  Country: None (occurrence: None)
  Receive Date: 20110113
  Receipt Date: 20110104
  Transmission Date: 20110831
  Serious: Yes (Other)
  Sender: FDA-Public Use
  Company Number: 024849

PATIENT
  Sex: Female

DRUGS (8)
  1. NAPROXEN [Concomitant]
  2. INDAPAMIDE [Concomitant]
  3. ACTONEL [Concomitant]
  4. PREDNISONE [Concomitant]
  5. RAMIPRIL [Concomitant]
  6. CIMZIA [Suspect]
     Indication: RHEUMATOID ARTHRITIS
     Dosage: (400 MG 1X/2 WEEKS SUBCUTANEOUS)
     Route: 058
     Dates: start: 20101224
  7. K-DUR [Concomitant]
  8. RAPAMUNE [Concomitant]

REACTIONS (2)
  - RASH [None]
  - INJECTION SITE ERYTHEMA [None]
